FAERS Safety Report 17111753 (Version 2)
Quarter: 2019Q4

REPORT INFORMATION
  Report Type: Spontaneous
  Country: JP (occurrence: JP)
  Receive Date: 20191204
  Receipt Date: 20191217
  Transmission Date: 20200122
  Serious: Yes (Other)
  Sender: FDA-Public Use
  Company Number: JP-EVUS PHARMACEUTICALS, LLC-EPL201911-000014

PATIENT
  Age: 64 Year
  Sex: Male

DRUGS (2)
  1. ACETYLCHOLINE [Suspect]
     Active Substance: ACETYLCHOLINE CHLORIDE
     Indication: PRODUCT USED FOR UNKNOWN INDICATION
     Dosage: 25 MCG (RIGHT CORONARY ARTERY)
     Route: 022
  2. NITROGLYCERIN. [Suspect]
     Active Substance: NITROGLYCERIN
     Indication: CHEST PAIN
     Dosage: UNKNOWN (RIGHT CORONARY ARTERY)
     Route: 022

REACTIONS (1)
  - ECG signs of myocardial ischaemia [Unknown]
